FAERS Safety Report 6229283-2 (Version None)
Quarter: 2009Q2

REPORT INFORMATION
  Report Type: 
  Country: None (occurrence: None)
  Receive Date: 20090615
  Receipt Date: 20090601
  Transmission Date: 20091009
  Serious: Yes (Hospitalization)
  Sender: FDA-Public Use
  Company Number: US-BAYER-200923295NA

PATIENT
  Age: 63 Year
  Sex: Female

DRUGS (2)
  1. SORAFENIB [Suspect]
     Indication: MALIGNANT MELANOMA
     Route: 048
  2. TAXOL [Concomitant]
     Indication: MALIGNANT MELANOMA

REACTIONS (2)
  - BLISTER [None]
  - SKIN EXFOLIATION [None]
